FAERS Safety Report 16332487 (Version 1)
Quarter: 2019Q2

REPORT INFORMATION
  Report Type: Spontaneous
  Country: US (occurrence: US)
  Receive Date: 20190520
  Receipt Date: 20190520
  Transmission Date: 20190711
  Serious: No
  Sender: FDA-Public Use
  Company Number: US-PFIZER INC-2019208355

PATIENT
  Age: 73 Year

DRUGS (3)
  1. LODINE [Suspect]
     Active Substance: ETODOLAC
     Dosage: UNK
  2. DAYPRO [Suspect]
     Active Substance: OXAPROZIN
     Dosage: UNK
  3. MAXIDEX [Suspect]
     Active Substance: DEXAMETHASONE
     Dosage: UNK

REACTIONS (1)
  - Drug hypersensitivity [Unknown]
